FAERS Safety Report 6877024-8 (Version None)
Quarter: 2010Q3

REPORT INFORMATION
  Report Type: 
  Country: None (occurrence: None)
  Receive Date: 20100727
  Receipt Date: 20100727
  Transmission Date: 20110219
  Serious: Yes (Other)
  Sender: FDA-Public Use
  Company Number: None

PATIENT
  Sex: Female
  Weight: 134.7183 kg

DRUGS (1)
  1. YAZ [Suspect]
     Indication: HORMONE LEVEL ABNORMAL
     Dosage: 1 PILL PER DAY PO
     Route: 048
     Dates: start: 20080101, end: 20081229

REACTIONS (1)
  - CHOLELITHIASIS [None]
